FAERS Safety Report 4587440-5 (Version None)
Quarter: 2005Q1

REPORT INFORMATION
  Report Type: 
  Country: None (occurrence: None)
  Receive Date: 20050218
  Receipt Date: 20041104
  Transmission Date: 20050727
  Serious: Yes (Other)
  Sender: FDA-Public Use
  Company Number: JP-ABBOTT-04P-087-0282299-00

PATIENT
  Age: 4 Year
  Sex: Male
  Weight: 16.5 kg

DRUGS (20)
  1. SEVORANE LIQUID FOR INHALATION [Suspect]
     Indication: ANAESTHESIA
     Route: 055
  2. SEVORANE LIQUID FOR INHALATION [Suspect]
     Route: 055
  3. SEVORANE LIQUID FOR INHALATION [Suspect]
     Dosage: 3-5%
     Route: 055
  4. SUXAMETHONIUM CHLORIDE [Suspect]
     Indication: MUSCLE RELAXANT THERAPY
     Route: 042
  5. SUXAMETHONIUM CHLORIDE [Suspect]
  6. ATROPINE SULFATE [Concomitant]
     Indication: PREMEDICATION
     Route: 054
  7. KETAMINE HCL [Concomitant]
     Indication: PREMEDICATION
     Route: 054
  8. KETAMINE HCL [Concomitant]
     Indication: SEDATION
     Route: 042
  9. MIDAZOLAM [Concomitant]
     Indication: PREMEDICATION
     Route: 054
  10. THIOPENTAL SODIUM [Concomitant]
     Indication: INDUCTION OF ANAESTHESIA
     Route: 042
  11. NITROUS OXIDE [Concomitant]
     Indication: ANAESTHESIA
     Dosage: 3L/MIN
     Route: 055
  12. NITROUS OXIDE [Concomitant]
     Dosage: 4L/MIN
     Route: 055
  13. KETAMINE HCL [Concomitant]
     Indication: DRUG USE FOR UNKNOWN INDICATION
     Route: 042
  14. NITROUS OXIDE [Concomitant]
     Indication: DRUG USE FOR UNKNOWN INDICATION
     Dosage: 4L/MIN
  15. OXYGEN [Concomitant]
     Indication: DRUG USE FOR UNKNOWN INDICATION
     Dosage: 6L/MIN
     Route: 055
  16. OXYGEN [Concomitant]
     Dosage: 3L/MIN
     Route: 055
  17. OXYGEN [Concomitant]
     Dosage: 2L/MIN
     Route: 055
  18. OXYGEN [Concomitant]
     Dosage: 6L/MIN (PURE OXYGEN)
     Route: 055
  19. OXYGEN [Concomitant]
     Dosage: FLOW VOLUME 2L/MIN
  20. OXYGEN MASK [Concomitant]
     Indication: DRUG USE FOR UNKNOWN INDICATION
     Dosage: FLOW VOLUME: 2L/MIN

REACTIONS (17)
  - AIRWAY COMPLICATION OF ANAESTHESIA [None]
  - BLOOD CREATINE PHOSPHOKINASE INCREASED [None]
  - BLOOD URINE PRESENT [None]
  - BRADYCARDIA [None]
  - CHROMATURIA [None]
  - ELECTROCARDIOGRAM QRS COMPLEX PROLONGED [None]
  - ELECTROCARDIOGRAM T WAVE ABNORMAL [None]
  - HYPERTHERMIA MALIGNANT [None]
  - HYPOVENTILATION [None]
  - IRRITABILITY [None]
  - MALAISE [None]
  - MUSCLE RIGIDITY [None]
  - MUSCLE SPASMS [None]
  - MYOGLOBINURIA [None]
  - OBSTRUCTIVE AIRWAYS DISORDER [None]
  - PHARYNGOLARYNGEAL PAIN [None]
  - SINUS TACHYCARDIA [None]
